FAERS Safety Report 4339880-7 (Version None)
Quarter: 2004Q2

REPORT INFORMATION
  Report Type: 
  Country: None (occurrence: None)
  Receive Date: 20040416
  Receipt Date: 20040407
  Transmission Date: 20050107
  Serious: Yes (Hospitalization)
  Sender: FDA-Public Use
  Company Number: 200411225JP

PATIENT
  Age: 94 Year
  Sex: Male

DRUGS (5)
  1. KETEK [Suspect]
     Indication: NASOPHARYNGITIS
     Route: 048
     Dates: start: 20040312, end: 20040316
  2. MEDICON [Concomitant]
     Indication: COUGH
     Route: 048
     Dates: start: 20040312, end: 20040314
  3. SOLANTAL [Concomitant]
     Indication: PYREXIA
     Route: 048
     Dates: start: 20040312, end: 20040314
  4. LASIX [Concomitant]
     Indication: OEDEMA
     Route: 048
     Dates: start: 20040326, end: 20040401
  5. VASOLAN [Concomitant]
     Indication: HYPERTENSION
     Route: 048
     Dates: start: 20040309

REACTIONS (1)
  - RENAL FAILURE ACUTE [None]
